FAERS Safety Report 6433065-6 (Version None)
Quarter: 2009Q4

REPORT INFORMATION
  Report Type: 
  Country: None (occurrence: None)
  Receive Date: 20091105
  Receipt Date: 20091013
  Transmission Date: 20100525
  Serious: Yes (Hospitalization)
  Sender: FDA-Public Use
  Company Number: 8053948

PATIENT
  Sex: Female

DRUGS (1)
  1. CIMZIA [Suspect]
     Dosage: 400 MG /M; SC
     Route: 058
     Dates: start: 20081030

REACTIONS (3)
  - HEADACHE [None]
  - PNEUMONIA [None]
  - POST LUMBAR PUNCTURE SYNDROME [None]
